FAERS Safety Report 23191243 (Version 1)
Quarter: 2023Q4

REPORT INFORMATION
  Report Type: Spontaneous
  Country: US (occurrence: US)
  Receive Date: 20231116
  Receipt Date: 20231116
  Transmission Date: 20240109
  Serious: Yes (Hospitalization, Other)
  Sender: FDA-Public Use
  Company Number: US-AstraZeneca-CH-00507493A

PATIENT
  Age: 21 Year

DRUGS (1)
  1. SOLIRIS [Suspect]
     Active Substance: ECULIZUMAB
     Indication: Neuromyelitis optica spectrum disorder
     Dosage: UNK
     Route: 042
     Dates: start: 202208, end: 202308

REACTIONS (1)
  - Neuromyelitis optica spectrum disorder [Recovered/Resolved with Sequelae]

NARRATIVE: CASE EVENT DATE: 20231001
